FAERS Safety Report 16194973 (Version 2)
Quarter: 2019Q4

REPORT INFORMATION
  Report Type: Spontaneous
  Country: IN (occurrence: IN)
  Receive Date: 20190415
  Receipt Date: 20191007
  Transmission Date: 20200122
  Serious: Yes (Other)
  Sender: FDA-Public Use
  Company Number: IN-SUN PHARMACEUTICAL INDUSTRIES LTD-2019R1-205060

PATIENT
  Age: 27 Year
  Sex: Female

DRUGS (2)
  1. PROMETHAZINE [Suspect]
     Active Substance: PROMETHAZINE HYDROCHLORIDE
     Indication: PRODUCT USED FOR UNKNOWN INDICATION
     Dosage: UNK
     Route: 065
  2. PENTAZOCINE [Suspect]
     Active Substance: PENTAZOCINE
     Indication: PAIN
     Dosage: UNK
     Route: 065

REACTIONS (12)
  - Cognitive disorder [Unknown]
  - Skin ulcer [Unknown]
  - Generalised oedema [Unknown]
  - Injection site necrosis [Unknown]
  - Oliguria [Unknown]
  - Depression [Unknown]
  - Exposure during pregnancy [Unknown]
  - Hepatitis C virus test positive [Unknown]
  - Cortisol decreased [Unknown]
  - Dyspnoea exertional [Unknown]
  - Gangrene [Unknown]
  - Drug dependence [Unknown]
